FAERS Safety Report 23070806 (Version 4)
Quarter: 2025Q1

REPORT INFORMATION
  Report Type: Spontaneous
  Country: US (occurrence: US)
  Receive Date: 20231016
  Receipt Date: 20250220
  Transmission Date: 20250408
  Serious: Yes (Death, Other)
  Sender: PFIZER
  Company Number: US-PFIZER INC-PV202300170014

PATIENT
  Age: 79 Year
  Sex: Male

DRUGS (8)
  1. IBRANCE [Suspect]
     Active Substance: PALBOCICLIB
     Indication: Soft tissue sarcoma
     Route: 048
     Dates: start: 20230927
  2. ATORVASTATIN [Concomitant]
     Active Substance: ATORVASTATIN
  3. ESCITALOPRAM [Concomitant]
     Active Substance: ESCITALOPRAM OXALATE
  4. FINASTERIDE [Concomitant]
     Active Substance: FINASTERIDE
  5. FAMOTIDINE [Concomitant]
     Active Substance: FAMOTIDINE
  6. KETOCONAZOLE [Concomitant]
     Active Substance: KETOCONAZOLE
  7. ONDANSETRON [Concomitant]
     Active Substance: ONDANSETRON
  8. TAMSULOSIN [Concomitant]
     Active Substance: TAMSULOSIN

REACTIONS (8)
  - Death [Fatal]
  - Neutropenia [Unknown]
  - Blood potassium increased [Unknown]
  - Constipation [Not Recovered/Not Resolved]
  - Oedema peripheral [Unknown]
  - Blood sodium decreased [Unknown]
  - Nausea [Unknown]
  - Off label use [Unknown]

NARRATIVE: CASE EVENT DATE: 20230101
